FAERS Safety Report 23630970 (Version 3)
Quarter: 2024Q2

REPORT INFORMATION
  Report Type: Spontaneous
  Country: US (occurrence: US)
  Receive Date: 20240314
  Receipt Date: 20240507
  Transmission Date: 20240715
  Serious: No
  Sender: FDA-Public Use
  Company Number: US-APOTEX-2024AP003062

PATIENT
  Sex: Female

DRUGS (1)
  1. LISDEXAMFETAMINE DIMESYLATE [Suspect]
     Active Substance: LISDEXAMFETAMINE DIMESYLATE
     Indication: Attention deficit hyperactivity disorder
     Dosage: 1 DOSAGE FORM, Q.AM
     Route: 048
     Dates: start: 20240123

REACTIONS (8)
  - Confusional state [Unknown]
  - Memory impairment [Unknown]
  - Product substitution issue [Unknown]
  - Condition aggravated [Unknown]
  - Therapeutic response changed [Unknown]
  - Headache [Unknown]
  - Abdominal pain upper [Unknown]
  - Dry mouth [Unknown]

NARRATIVE: CASE EVENT DATE: 20240101
